FAERS Safety Report 9567755 (Version 1)
Quarter: 2013Q3

REPORT INFORMATION
  Report Type: Spontaneous
  Country: US (occurrence: US)
  Receive Date: 20130930
  Receipt Date: 20130930
  Transmission Date: 20140515
  Serious: No
  Sender: FDA-Public Use
  Company Number: US-AMGEN-USASP2013041771

PATIENT
  Age: 53 Year
  Sex: Female
  Weight: 90.25 kg

DRUGS (13)
  1. ENBREL [Suspect]
     Indication: PRODUCT USED FOR UNKNOWN INDICATION
     Dosage: 50 MG, QWK
     Route: 065
  2. FLEXERIL                           /00428402/ [Concomitant]
     Dosage: 10 MG, UNK
  3. AMBIEN [Concomitant]
     Dosage: 10 MG, UNK
  4. NEURONTIN [Concomitant]
     Dosage: 600 MG, UNK
  5. BUSPAR [Concomitant]
     Dosage: 5 MG, UNK
  6. ONDANSETRON [Concomitant]
     Dosage: 4 MG, UNK
  7. OMEPRAZOLE [Concomitant]
     Dosage: 40 MG, UNK
  8. LIBRIUM                            /00011501/ [Concomitant]
     Dosage: 25 MG, UNK
  9. DILTIAZEM CD [Concomitant]
     Dosage: 300 MG, UNK
  10. ESTRADIOL [Concomitant]
     Dosage: 0.025 MG, UNK
  11. ZETIA [Concomitant]
     Dosage: 10 MG, UNK
  12. FOLIC ACID [Concomitant]
     Dosage: 20 MG, UNK
  13. METHOTREXATE [Concomitant]
     Dosage: 1 G, UNK

REACTIONS (2)
  - Upper respiratory tract infection [Unknown]
  - Injection site pain [Unknown]
